FAERS Safety Report 4287306-4 (Version None)
Quarter: 2004Q1

REPORT INFORMATION
  Report Type: 
  Country: None (occurrence: None)
  Receive Date: 20040205
  Receipt Date: 20040123
  Transmission Date: 20041129
  Serious: Yes (Death)
  Sender: FDA-Public Use
  Company Number: 2004004825

PATIENT
  Age: 39 Year
  Sex: Male

DRUGS (2)
  1. DIPHENHYDRAMINE HCL [Suspect]
     Dosage: ORAL
     Route: 048
  2. PARACETAMOL (PARACETAMOL) [Concomitant]

REACTIONS (9)
  - BLOOD PRESSURE SYSTOLIC DECREASED [None]
  - BODY TEMPERATURE INCREASED [None]
  - COMA [None]
  - ELECTROCARDIOGRAM QRS COMPLEX PROLONGED [None]
  - GRAND MAL CONVULSION [None]
  - MYOCLONUS [None]
  - OVERDOSE [None]
  - RESPIRATORY RATE INCREASED [None]
  - TACHYCARDIA [None]
